FAERS Safety Report 14850621 (Version 1)
Quarter: 2018Q2

REPORT INFORMATION
  Report Type: Spontaneous
  Country: FR (occurrence: FR)
  Receive Date: 20180506
  Receipt Date: 20180506
  Transmission Date: 20180711
  Serious: Yes (Other)
  Sender: FDA-Public Use
  Company Number: FR-BRISTOL-MYERS SQUIBB COMPANY-BMS-2018-037345

PATIENT
  Age: 44 Year
  Sex: Male

DRUGS (10)
  1. NELFINAVIR [Suspect]
     Active Substance: NELFINAVIR
     Indication: HIV TEST POSITIVE
     Route: 065
  2. ABACAVIR. [Suspect]
     Active Substance: ABACAVIR
     Indication: HIV TEST POSITIVE
     Route: 065
  3. FOSAMPRENAVIR [Concomitant]
     Active Substance: FOSAMPRENAVIR
     Indication: HIV TEST POSITIVE
     Route: 065
  4. ZIDOVUDINE. [Suspect]
     Active Substance: ZIDOVUDINE
     Indication: HIV TEST POSITIVE
     Dosage: UNK
     Route: 065
     Dates: start: 1992, end: 1995
  5. LAMIVUDINE. [Suspect]
     Active Substance: LAMIVUDINE
     Indication: HIV TEST POSITIVE
     Route: 065
  6. EFAVIRENZ. [Suspect]
     Active Substance: EFAVIRENZ
     Indication: HIV TEST POSITIVE
     Route: 065
  7. TENOFOVIR [Suspect]
     Active Substance: TENOFOVIR
     Indication: HIV TEST POSITIVE
     Route: 065
  8. DIDANOSINE. [Suspect]
     Active Substance: DIDANOSINE
     Indication: HIV TEST POSITIVE
     Dosage: UNK
     Route: 065
     Dates: start: 1992, end: 1995
  9. INDINAVIR [Suspect]
     Active Substance: INDINAVIR
     Indication: HIV TEST POSITIVE
     Route: 065
  10. STAVUDINE. [Suspect]
     Active Substance: STAVUDINE
     Indication: HIV TEST POSITIVE
     Route: 065

REACTIONS (1)
  - Inclusion body myositis [Not Recovered/Not Resolved]

NARRATIVE: CASE EVENT DATE: 2009
